FAERS Safety Report 19629270 (Version 1)
Quarter: 2021Q3

REPORT INFORMATION
  Report Type: Spontaneous
  Country: HU (occurrence: HU)
  Receive Date: 20210729
  Receipt Date: 20210729
  Transmission Date: 20211014
  Serious: No
  Sender: FDA-Public Use
  Company Number: HU-LUPIN PHARMACEUTICALS INC.-2021-13009

PATIENT
  Age: 6 Year
  Sex: Male

DRUGS (2)
  1. EPHEDRINE. [Suspect]
     Active Substance: EPHEDRINE
     Indication: CONGENITAL MYASTHENIC SYNDROME
     Dosage: 12.5 MILLIGRAM, BID
     Route: 065
  2. ALBUTEROL SULFATE. [Suspect]
     Active Substance: ALBUTEROL SULFATE
     Indication: CONGENITAL MYASTHENIC SYNDROME
     Dosage: UNK UNK, TID (0.5?1 MG)
     Route: 048

REACTIONS (1)
  - Off label use [Unknown]
